FAERS Safety Report 8389771-X (Version None)
Quarter: 2012Q2

REPORT INFORMATION
  Report Type: 
  Country: None (occurrence: None)
  Receive Date: 20120529
  Receipt Date: 20120523
  Transmission Date: 20120825
  Serious: Yes (Other)
  Sender: FDA-Public Use
  Company Number: PHHY2009AU05990

PATIENT
  Sex: Female

DRUGS (3)
  1. TEGRETOL [Suspect]
     Dosage: 100 MG, BID
     Route: 048
  2. TEGRETOL [Suspect]
     Indication: TRIGEMINAL NEURALGIA
     Dosage: 100 MG, DAILY
     Route: 048
  3. TEGRETOL [Suspect]
     Dosage: 400 MG, DAILY
     Route: 048

REACTIONS (4)
  - GLAUCOMA [None]
  - NEURALGIA [None]
  - BLOOD PRESSURE INCREASED [None]
  - PRURITUS [None]
